FAERS Safety Report 5867846-4 (Version None)
Quarter: 2008Q3

REPORT INFORMATION
  Report Type: 
  Country: None (occurrence: None)
  Receive Date: 20080902
  Receipt Date: 20080319
  Transmission Date: 20090109
  Serious: Yes (Death)
  Sender: FDA-Public Use
  Company Number: FR-PFIZER INC-2008072079

PATIENT
  Sex: Male

DRUGS (7)
  1. EPIRUBICIN HYDROCHLORIDE [Suspect]
     Indication: METASTATIC GASTRIC CANCER
     Route: 042
     Dates: start: 20080222, end: 20080222
  2. CISPLATIN [Suspect]
     Indication: METASTATIC GASTRIC CANCER
     Route: 042
     Dates: start: 20080222, end: 20080222
  3. XELODA [Suspect]
     Indication: METASTATIC GASTRIC CANCER
     Route: 048
     Dates: start: 20080222, end: 20080304
  4. ZOPHREN [Concomitant]
     Indication: NAUSEA
     Route: 042
     Dates: start: 20080222, end: 20080222
  5. ZOPHREN [Concomitant]
     Route: 048
  6. METHYLPREDNISOLONE [Concomitant]
     Indication: NAUSEA
     Route: 042
     Dates: start: 20080222, end: 20080222
  7. ALIZAPRIDE HYDROCHLORIDE [Concomitant]
     Indication: NAUSEA
     Route: 042
     Dates: start: 20080222, end: 20080222

REACTIONS (1)
  - SUDDEN DEATH [None]
